FAERS Safety Report 15832047 (Version 1)
Quarter: 2019Q1

REPORT INFORMATION
  Report Type: Spontaneous
  Country: GB (occurrence: GB)
  Receive Date: 20190116
  Receipt Date: 20190116
  Transmission Date: 20190417
  Serious: Yes (Other)
  Sender: FDA-Public Use
  Company Number: GB-TEVA-2019-GB-998637

PATIENT
  Age: 45 Year
  Sex: Female
  Weight: 75.29 kg

DRUGS (11)
  1. TRAMADOL HYDROCHLORIDE. [Concomitant]
     Active Substance: TRAMADOL HYDROCHLORIDE
  2. AMITRIPTYLINE [Concomitant]
     Active Substance: AMITRIPTYLINE
     Dosage: 70 MILLIGRAM DAILY;
  3. TRIMETHOPRIM. [Suspect]
     Active Substance: TRIMETHOPRIM
     Indication: URINARY TRACT INFECTION
     Route: 048
     Dates: start: 20130904, end: 20130904
  4. PREGABALIN MYLAN [Concomitant]
     Active Substance: PREGABALIN
     Dosage: 600 MILLIGRAM DAILY;
  5. FEXOFENADINE HYDROCHLORIDE. [Concomitant]
     Active Substance: FEXOFENADINE HYDROCHLORIDE
     Dosage: 180 MILLIGRAM DAILY;
  6. CERAZETTE [Concomitant]
  7. MORPHINE SULFATE. [Concomitant]
     Active Substance: MORPHINE SULFATE
     Dosage: 50 MILLIGRAM DAILY;
  8. OMEPRAZOLE. [Concomitant]
     Active Substance: OMEPRAZOLE
     Dosage: 40 MILLIGRAM DAILY;
  9. ELLESTE-SOLO [Concomitant]
  10. NITROFURANTOIN. [Concomitant]
     Active Substance: NITROFURANTOIN
  11. ORAMORPH [Concomitant]
     Active Substance: MORPHINE SULFATE

REACTIONS (2)
  - Lip swelling [Unknown]
  - Throat tightness [Unknown]

NARRATIVE: CASE EVENT DATE: 20130904
